FAERS Safety Report 18429281 (Version 1)
Quarter: 2020Q4

REPORT INFORMATION
  Report Type: Spontaneous
  Country: US (occurrence: US)
  Receive Date: 20201026
  Receipt Date: 20201026
  Transmission Date: 20210114
  Serious: Yes (Hospitalization)
  Sender: FDA-Public Use
  Company Number: US-009507513-2010USA006836

PATIENT
  Age: 15 Year
  Sex: Female

DRUGS (5)
  1. IVACAFTOR (+) TEZACAFTOR [Suspect]
     Active Substance: IVACAFTOR\TEZACAFTOR
     Indication: CYSTIC FIBROSIS
     Dosage: (100 MG ELEXACAFTOR/ 50 MG TEZACAFTOR/ 75 MG IVACAFTOR; 150 MG IVACAFTOR) TRADITIONAL DOSING
     Route: 048
     Dates: start: 20191127
  2. OMADACYCLINE. [Concomitant]
     Active Substance: OMADACYCLINE
  3. SIVEXTRO [Suspect]
     Active Substance: TEDIZOLID PHOSPHATE
     Indication: PRODUCT USED FOR UNKNOWN INDICATION
     Route: 065
  4. CAYSTON [Concomitant]
     Active Substance: AZTREONAM
  5. CLOFAZIMINE [Concomitant]
     Active Substance: CLOFAZIMINE

REACTIONS (1)
  - Serotonin syndrome [Recovered/Resolved]

NARRATIVE: CASE EVENT DATE: 20200715
